FAERS Safety Report 9316553 (Version 1)
Quarter: 2013Q2

REPORT INFORMATION
  Report Type: Spontaneous
  Country: US (occurrence: None)
  Receive Date: 20130528
  Receipt Date: 20130528
  Transmission Date: 20140414
  Serious: Yes (Life-Threatening)
  Sender: FDA-Public Use
  Company Number: None

PATIENT
  Age: 55 Year
  Sex: Female
  Weight: 68.04 kg

DRUGS (1)
  1. NUVIGIL [Suspect]
     Indication: NARCOLEPSY
     Dosage: 1 1/2 TAB
     Route: 007
     Dates: start: 20120801, end: 20130527

REACTIONS (9)
  - Rash [None]
  - Abscess [None]
  - Skin disorder [None]
  - Visual acuity reduced [None]
  - Sinus disorder [None]
  - Ear disorder [None]
  - Pyrexia [None]
  - Biliary dilatation [None]
  - Haemorrhage [None]
